FAERS Safety Report 20120192 (Version 1)
Quarter: 2021Q4

REPORT INFORMATION
  Report Type: Spontaneous
  Country: NO (occurrence: NO)
  Receive Date: 20211126
  Receipt Date: 20211126
  Transmission Date: 20220304
  Serious: Yes (Life-Threatening, Hospitalization)
  Sender: FDA-Public Use
  Company Number: None

PATIENT
  Age: 74 Year
  Sex: Female

DRUGS (13)
  1. DOXORUBICIN HYDROCHLORIDE [Suspect]
     Active Substance: DOXORUBICIN HYDROCHLORIDE
     Indication: Thymoma
     Dosage: 40 MG/M2
     Route: 042
     Dates: start: 20210907, end: 20210910
  2. CISPLATIN [Suspect]
     Active Substance: CISPLATIN
     Indication: Thymoma
     Dosage: 40 MG/M2
     Route: 042
     Dates: start: 20210907, end: 20210910
  3. ETOPOSIDE [Suspect]
     Active Substance: ETOPOSIDE
     Indication: Thymoma
     Dosage: 100 MG/M2
     Route: 042
     Dates: start: 20210907, end: 20210910
  4. PANTOPRAZOLE SODIUM [Concomitant]
     Active Substance: PANTOPRAZOLE SODIUM
     Indication: Prophylaxis of nausea and vomiting
     Dates: start: 20210907, end: 20210910
  5. AKYNZEO [Concomitant]
     Active Substance: NETUPITANT\PALONOSETRON HYDROCHLORIDE
     Indication: Prophylaxis of nausea and vomiting
     Dates: start: 20210907, end: 20210910
  6. FENAZON-KOFFEIN [Concomitant]
  7. DEXAMETHASONE [Concomitant]
     Active Substance: DEXAMETHASONE
     Indication: Prophylaxis of nausea and vomiting
     Dates: start: 20210907, end: 20210910
  8. XARELTO [Concomitant]
     Active Substance: RIVAROXABAN
  9. ESTRADIOL HEMIHYDRATE\NORETHINDRONE ACETATE [Concomitant]
     Active Substance: ESTRADIOL HEMIHYDRATE\NORETHINDRONE ACETATE
  10. ELOCON [Concomitant]
     Active Substance: MOMETASONE FUROATE
  11. PARALGIN FORTE [CODEINE PHOSPHATE;PARACETAMOL] [Concomitant]
  12. METOPROLOL TARTRATE [Concomitant]
     Active Substance: METOPROLOL TARTRATE
  13. ALBUTEROL SULFATE [Concomitant]
     Active Substance: ALBUTEROL SULFATE

REACTIONS (1)
  - Mesenteric haemorrhage [Recovering/Resolving]

NARRATIVE: CASE EVENT DATE: 20210910
